FAERS Safety Report 8699980 (Version 4)
Quarter: 2012Q4

REPORT INFORMATION
  Report Type: 
  Country: IN (occurrence: IN)
  Receive Date: 20120802
  Receipt Date: 20120906
  Transmission Date: 20130627
  Serious: Yes (Death)
  Sender: FDA-Public Use
  Company Number: PHHO2012IN009718

PATIENT
  Age: 38 Year
  Sex: Male
  Weight: 73 kg

DRUGS (14)
  1. DIGOXIN [Suspect]
     Dosage: UNK
     Dates: start: 20110502, end: 20120522
  2. BLINDED ENALAPRIL [Suspect]
     Indication: CARDIAC FAILURE CHRONIC
     Dosage: Code not broken
     Route: 048
     Dates: start: 20111123, end: 20120521
  3. UNSPECIFIED INGREDIENT [Suspect]
     Indication: CARDIAC FAILURE CHRONIC
     Dosage: Code not broken
     Route: 048
     Dates: start: 20111123, end: 20120521
  4. BLINDED NO TREATMENT RECEIVED [Suspect]
     Indication: CARDIAC FAILURE CHRONIC
     Dosage: Code not broken
     Route: 048
     Dates: start: 20111123, end: 20120521
  5. BLINDED ENALAPRIL [Suspect]
     Dosage: UNK
     Dates: start: 20120327
  6. UNSPECIFIED INGREDIENT [Suspect]
     Dosage: UNK
     Dates: start: 20120327
  7. BLINDED NO TREATMENT RECEIVED [Suspect]
     Dosage: UNK
     Dates: start: 20120327
  8. CARDIOVAS [Concomitant]
     Indication: CARDIOVASCULAR DISORDER
     Dosage: 10 mg, QD
     Dates: start: 20110502, end: 20120521
  9. DYTOR [Concomitant]
     Indication: CARDIAC FAILURE
     Dosage: 20 mg, 1/2 OD
     Dates: start: 20110327, end: 20120521
  10. DYTOR [Concomitant]
     Indication: DIURETIC THERAPY
  11. ECOSPRIN [Concomitant]
     Indication: CARDIOVASCULAR DISORDER
     Dosage: 75 mg, QD
     Dates: start: 20110903, end: 20120521
  12. LANOXIN [Concomitant]
     Indication: CARDIAC FAILURE
     Dosage: 0.25 mg, QD
     Dates: start: 20110502, end: 20120521
  13. CARVEDILOL [Concomitant]
     Indication: CARDIOVASCULAR DISORDER
     Dosage: 10 OD
     Dates: start: 20110502
  14. GLIMEPIRIDE W/METFORMIN [Concomitant]
     Indication: DIABETES MELLITUS
     Dosage: 2 OD
     Dates: start: 20110502, end: 20120521

REACTIONS (4)
  - Jaundice [Fatal]
  - Nausea [Fatal]
  - Vomiting [Fatal]
  - Blood bilirubin increased [None]
